FAERS Safety Report 21477533 (Version 1)
Quarter: 2022Q4

REPORT INFORMATION
  Report Type: Spontaneous
  Country: US (occurrence: US)
  Receive Date: 20221019
  Receipt Date: 20221019
  Transmission Date: 20230113
  Serious: Yes (Hospitalization, Other)
  Sender: FDA-Public Use
  Company Number: US-LUPIN PHARMACEUTICALS INC.-2022-12212

PATIENT
  Age: 48 Year
  Sex: Male

DRUGS (8)
  1. RIFABUTIN [Suspect]
     Active Substance: RIFABUTIN
     Indication: Extrapulmonary tuberculosis
     Dosage: UNK
     Route: 065
  2. RIFABUTIN [Suspect]
     Active Substance: RIFABUTIN
     Dosage: UNK THERAPY RE-STARTED IN STEP-WISE APPROACH
     Route: 065
  3. ETHAMBUTOL HYDROCHLORIDE [Suspect]
     Active Substance: ETHAMBUTOL HYDROCHLORIDE
     Indication: Extrapulmonary tuberculosis
     Dosage: UNK
     Route: 065
  4. ETHAMBUTOL HYDROCHLORIDE [Suspect]
     Active Substance: ETHAMBUTOL HYDROCHLORIDE
     Dosage: UNK THERAPY RE-STARTED IN STEP-WISE APPROACH
     Route: 065
  5. ISONIAZID [Suspect]
     Active Substance: ISONIAZID
     Indication: Extrapulmonary tuberculosis
     Dosage: UNK
     Route: 065
  6. ISONIAZID [Suspect]
     Active Substance: ISONIAZID
     Dosage: UNK THERAPY RE-STARTED IN STEP-WISE APPROACH
     Route: 065
  7. PYRAZINAMIDE [Suspect]
     Active Substance: PYRAZINAMIDE
     Indication: Extrapulmonary tuberculosis
     Dosage: UNK
     Route: 065
  8. PYRAZINAMIDE [Suspect]
     Active Substance: PYRAZINAMIDE
     Dosage: UNK THERAPY RE-STARTED IN STEP-WISE APPROACH
     Route: 065

REACTIONS (1)
  - Hepatotoxicity [Recovering/Resolving]
